FAERS Safety Report 9593572 (Version 2)
Quarter: 2013Q4

REPORT INFORMATION
  Report Type: Spontaneous
  Country: US (occurrence: US)
  Receive Date: 20131004
  Receipt Date: 20131004
  Transmission Date: 20140711
  Serious: No
  Sender: FDA-Public Use
  Company Number: US-JNJFOC-20130911446

PATIENT
  Sex: Male
  Weight: 79.38 kg

DRUGS (10)
  1. SANDOZ FENTANYL TRANSDERMAL SYSTEM [Suspect]
     Indication: BACK PAIN
     Dosage: 100 UG/HR X 4
     Route: 062
     Dates: end: 201307
  2. FENTANYL TRANSDERMAL SYSTEM [Suspect]
     Indication: BACK PAIN
     Dosage: 100 UG/HR X 4 IN ??STARTED IN 2004 OR 2005
     Route: 062
     Dates: end: 201307
  3. SANDOZ FENTANYL TRANSDERMAL SYSTEM [Suspect]
     Indication: BACK PAIN
     Route: 062
  4. SANDOZ FENTANYL TRANSDERMAL SYSTEM [Suspect]
     Indication: BACK PAIN
     Dosage: 2 X 75 UG/HR
     Route: 062
     Dates: start: 20130917
  5. FENTANYL [Suspect]
     Indication: BREAKTHROUGH PAIN
     Dosage: STARTED IN 2005 OR 2006
     Route: 048
  6. MORPHINE [Concomitant]
     Indication: BACK PAIN
     Route: 065
  7. METOPROLOL [Concomitant]
     Indication: HYPERTENSION
     Route: 048
     Dates: start: 2004
  8. AMLODIPINE BESYLATE [Concomitant]
     Indication: HYPERTENSION
     Route: 048
     Dates: start: 2004
  9. LISINOPRIL [Concomitant]
     Indication: HYPERTENSION
     Route: 048
     Dates: start: 2004
  10. HYDROCHLOROTHIAZIDE [Concomitant]
     Indication: HYPERTENSION
     Route: 048
     Dates: start: 2004

REACTIONS (11)
  - Bronchospasm [Recovered/Resolved]
  - Overdose [Recovered/Resolved]
  - Dermatitis contact [Recovered/Resolved]
  - Drug diversion [Recovered/Resolved]
  - Drug dose omission [Unknown]
  - Breakthrough pain [Recovered/Resolved]
  - Hyperhidrosis [Not Recovered/Not Resolved]
  - Abnormal loss of weight [Recovered/Resolved]
  - Insomnia [Not Recovered/Not Resolved]
  - Lacrimation increased [Not Recovered/Not Resolved]
  - Decreased appetite [Not Recovered/Not Resolved]
